FAERS Safety Report 17644624 (Version 1)
Quarter: 2020Q2

REPORT INFORMATION
  Report Type: Spontaneous
  Country: US (occurrence: US)
  Receive Date: 20200408
  Receipt Date: 20200408
  Transmission Date: 20200713
  Serious: Yes (Other)
  Sender: FDA-Public Use
  Company Number: None

PATIENT
  Age: 15 Year
  Sex: Female
  Weight: 108 kg

DRUGS (1)
  1. ETOPOSIDE. [Suspect]
     Active Substance: ETOPOSIDE
     Indication: HODGKIN^S DISEASE NODULAR SCLEROSIS
     Dosage: ?          OTHER FREQUENCY:EVERY 20 HOURS;?
     Route: 042
     Dates: start: 20200227, end: 20200227

REACTIONS (4)
  - Oxygen saturation decreased [None]
  - Nausea [None]
  - Syncope [None]
  - Crying [None]

NARRATIVE: CASE EVENT DATE: 20200227
